FAERS Safety Report 8226136-5 (Version None)
Quarter: 2012Q1

REPORT INFORMATION
  Report Type: 
  Country: None (occurrence: None)
  Receive Date: 20120307
  Receipt Date: 20100222
  Transmission Date: 20120608
  Serious: No
  Sender: FDA-Public Use
  Company Number: PHEH2009US11019

PATIENT
  Age: 49 Year
  Sex: Male

DRUGS (26)
  1. METFORMIN HCL [Concomitant]
  2. PIOGLITAZONE [Concomitant]
  3. AEROBID [Concomitant]
  4. LORTAB [Concomitant]
  5. ATENOLOL [Concomitant]
  6. LEVAQUIN [Concomitant]
  7. CLONIDINE [Concomitant]
  8. HYDROXYZINE [Concomitant]
  9. CLONAZEPAM (CLONAZEPAM0 [Concomitant]
  10. TEMAZEPAM [Concomitant]
  11. AMBIEN [Concomitant]
  12. AFINITOR [Suspect]
     Indication: RENAL CELL CARCINOMA
     Dosage: 10 MG, DAILY, ORAL, 10 MG, DIALY, ORAL, 10 MG, DAILY, ORAL
     Route: 048
     Dates: start: 20090909
  13. AFINITOR [Suspect]
     Indication: RENAL CELL CARCINOMA
     Dosage: 10 MG, DAILY, ORAL, 10 MG, DIALY, ORAL, 10 MG, DAILY, ORAL
     Route: 048
     Dates: start: 20090701
  14. AFINITOR [Suspect]
     Indication: RENAL CELL CARCINOMA
     Dosage: 10 MG, DAILY, ORAL, 10 MG, DIALY, ORAL, 10 MG, DAILY, ORAL
     Route: 048
     Dates: start: 20090818
  15. ALBUTEROL [Concomitant]
  16. LISINOPRIL [Concomitant]
  17. AMLODIPINE BESYLATE [Concomitant]
  18. FLUNISOLIDE (FLUNISOLIDE) [Concomitant]
  19. XANAX [Concomitant]
  20. PERCOCET [Concomitant]
  21. KEFLEX [Concomitant]
  22. MONTELUKAST [Concomitant]
  23. FENOFIBRATE [Concomitant]
  24. ULTRACET [Concomitant]
  25. HYDROCHLOROTHIAZIDE [Concomitant]
  26. NEXAVAR [Concomitant]

REACTIONS (5)
  - ABDOMINAL PAIN UPPER [None]
  - NAUSEA [None]
  - VOMITING [None]
  - GASTROINTESTINAL PAIN [None]
  - DIARRHOEA [None]
